FAERS Safety Report 7519729-1 (Version None)
Quarter: 2011Q2

REPORT INFORMATION
  Report Type: 
  Country: None (occurrence: None)
  Receive Date: 20110602
  Receipt Date: 20110517
  Transmission Date: 20111010
  Serious: No
  Sender: FDA-Public Use
  Company Number: US-B.I. PHARMACEUTICALS,INC./RIDGEFIELD-2011-BP-13376BP

PATIENT
  Age: 76 Year
  Sex: Female

DRUGS (13)
  1. KLOR-CON [Concomitant]
     Indication: ELECTROLYTE SUBSTITUTION THERAPY
     Dosage: 10 MEQ
     Route: 048
  2. METOPROLOL TARTRATE [Concomitant]
     Indication: HYPERTENSION
     Dosage: 12.5 MG
     Route: 048
  3. PREMARIN [Concomitant]
     Indication: MENOPAUSE
     Dosage: 250 MG
     Route: 048
  4. RANITIDINE [Concomitant]
     Indication: GASTROOESOPHAGEAL REFLUX DISEASE
     Dosage: 300 MG
     Route: 048
  5. NITROGLYCERIN [Concomitant]
     Indication: ANGINA PECTORIS
     Route: 060
  6. FUROSEMIDE [Concomitant]
     Indication: CARDIAC FAILURE CONGESTIVE
     Dosage: 40 MG
     Route: 048
  7. LEVOTHYROXINE SODIUM [Concomitant]
     Indication: HYPOTHYROIDISM
     Dosage: 100 MCG
     Route: 048
  8. LORTAB [Concomitant]
     Indication: NEURALGIA
     Route: 048
  9. SYMBICORT [Concomitant]
     Indication: CHRONIC OBSTRUCTIVE PULMONARY DISEASE
     Route: 055
  10. GABAPENTIN [Concomitant]
     Indication: NEURALGIA
     Dosage: 600 MG
     Route: 048
  11. LIPITOR [Concomitant]
     Indication: BLOOD CHOLESTEROL INCREASED
     Dosage: 10 MG
     Route: 048
  12. FENTANYL-100 [Concomitant]
     Indication: NEURALGIA
     Dosage: 75 MCG
     Route: 061
  13. PRADAXA [Suspect]
     Indication: ATRIAL FIBRILLATION
     Dosage: 300 MG
     Route: 048
     Dates: start: 20110513

REACTIONS (1)
  - PAIN IN EXTREMITY [None]
